FAERS Safety Report 6977258-8 (Version None)
Quarter: 2010Q3

REPORT INFORMATION
  Report Type: 
  Country: None (occurrence: None)
  Receive Date: 20100910
  Receipt Date: 20100901
  Transmission Date: 20110219
  Serious: Yes (Hospitalization)
  Sender: FDA-Public Use
  Company Number: GXKR2010TR09970

PATIENT
  Age: 26 Year
  Sex: Male

DRUGS (9)
  1. QUETIAPINE (NGX) [Suspect]
     Indication: FLIGHT OF IDEAS
     Dosage: 200 MG, PER DAY
     Route: 065
  2. QUETIAPINE (NGX) [Suspect]
     Indication: INSOMNIA
     Dosage: 400 MG, PER DAY
     Route: 065
  3. QUETIAPINE (NGX) [Suspect]
     Indication: DISTRACTIBILITY
  4. VALPROIC ACID (NGX) [Suspect]
     Indication: FLIGHT OF IDEAS
     Dosage: 500 MG/DAY
     Route: 065
  5. VALPROIC ACID (NGX) [Suspect]
     Indication: INSOMNIA
  6. VALPROIC ACID (NGX) [Suspect]
     Indication: DISTRACTIBILITY
  7. LITHIUM [Concomitant]
     Indication: FLIGHT OF IDEAS
     Route: 065
  8. LITHIUM [Concomitant]
     Indication: INSOMNIA
  9. LITHIUM [Concomitant]
     Indication: DISTRACTIBILITY

REACTIONS (3)
  - BLOOD CREATINE PHOSPHOKINASE [None]
  - HEPATIC ENZYME INCREASED [None]
  - MYALGIA [None]
